FAERS Safety Report 17875235 (Version 1)
Quarter: 2020Q2

REPORT INFORMATION
  Report Type: Spontaneous
  Country: US (occurrence: US)
  Receive Date: 20200609
  Receipt Date: 20200609
  Transmission Date: 20200714
  Serious: Yes (Death, Other)
  Sender: FDA-Public Use
  Company Number: None

PATIENT
  Age: 85 Year
  Sex: Male
  Weight: 92.6 kg

DRUGS (16)
  1. NOREPINEPHRINE. [Concomitant]
     Active Substance: NOREPINEPHRINE
     Dates: start: 20200602, end: 20200605
  2. CONVALESCENT SERUM [Concomitant]
     Dates: start: 20200602, end: 20200602
  3. REMDESIVIR. [Suspect]
     Active Substance: REMDESIVIR
     Indication: CORONAVIRUS INFECTION
     Route: 042
     Dates: start: 20200602, end: 20200602
  4. KETAMINE [Concomitant]
     Active Substance: KETAMINE
     Dates: start: 20200604, end: 20200605
  5. DEXAMETHASONE. [Concomitant]
     Active Substance: DEXAMETHASONE
     Dates: start: 20200603, end: 20200605
  6. REMDESIVIR. [Suspect]
     Active Substance: REMDESIVIR
     Indication: CORONAVIRUS INFECTION
     Route: 042
     Dates: start: 20200603, end: 20200603
  7. FENTANYL. [Concomitant]
     Active Substance: FENTANYL
     Dates: start: 20200602, end: 20200605
  8. AZITHROMYCIN ANHYDROUS. [Concomitant]
     Active Substance: AZITHROMYCIN ANHYDROUS
     Dates: start: 20200602, end: 20200605
  9. CEFTRIAXONE. [Concomitant]
     Active Substance: CEFTRIAXONE
     Dates: start: 20200602, end: 20200604
  10. FAMOTIDINE. [Concomitant]
     Active Substance: FAMOTIDINE
     Dates: start: 20200601, end: 20200605
  11. LORAZEPAM. [Concomitant]
     Active Substance: LORAZEPAM
     Dates: start: 20200602, end: 20200605
  12. D5W WITH 3 AMPS BICARB [Concomitant]
     Dates: start: 20200603, end: 20200605
  13. EPOPROSTENOL. [Concomitant]
     Active Substance: EPOPROSTENOL
     Dates: start: 20200603, end: 20200605
  14. HEPARIN [Concomitant]
     Active Substance: HEPARIN SODIUM
     Dates: start: 20200602, end: 20200605
  15. PROPOFOL. [Concomitant]
     Active Substance: PROPOFOL
     Dates: start: 20200602, end: 20200604
  16. ROCURONIUM [Concomitant]
     Active Substance: ROCURONIUM BROMIDE
     Dates: start: 20200603, end: 20200605

REACTIONS (3)
  - Acute kidney injury [None]
  - Cardio-respiratory arrest [None]
  - Respiratory failure [None]

NARRATIVE: CASE EVENT DATE: 20200605
